FAERS Safety Report 6842104-X (Version None)
Quarter: 2010Q3

REPORT INFORMATION
  Report Type: 
  Country: None (occurrence: None)
  Receive Date: 20100714
  Receipt Date: 20070721
  Transmission Date: 20110219
  Serious: No
  Sender: FDA-Public Use
  Company Number: US-PFIZER INC-2007061868

PATIENT
  Sex: Female
  Weight: 71.7 kg

DRUGS (10)
  1. CHANTIX [Suspect]
     Indication: SMOKING CESSATION THERAPY
     Dates: start: 20070714
  2. BENICAR [Concomitant]
  3. MONTELUKAST SODIUM [Concomitant]
  4. PREMPRO [Concomitant]
  5. LEVOTHYROXINE SODIUM [Concomitant]
  6. MOBIC [Concomitant]
  7. ZOCOR [Concomitant]
  8. FLEXERIL [Concomitant]
  9. PANADEINE CO [Concomitant]
  10. ELAVIL [Concomitant]

REACTIONS (3)
  - HEADACHE [None]
  - NAUSEA [None]
  - SOMNOLENCE [None]
